FAERS Safety Report 4919032-X (Version None)
Quarter: 2006Q1

REPORT INFORMATION
  Report Type: 
  Country: None (occurrence: None)
  Receive Date: 20060215
  Receipt Date: 20060203
  Transmission Date: 20060701
  Serious: Yes (Hospitalization)
  Sender: FDA-Public Use
  Company Number: B0410359A

PATIENT
  Age: 50 Year
  Sex: Male

DRUGS (4)
  1. ACETAMINOPHEN [Suspect]
     Indication: UPPER RESPIRATORY TRACT INFECTION
  2. MEFENAMIC ACID [Suspect]
     Indication: UPPER RESPIRATORY TRACT INFECTION
  3. AUGMENTIN '250' [Suspect]
     Indication: UPPER RESPIRATORY TRACT INFECTION
  4. DICLOFENAC [Suspect]
     Indication: UPPER RESPIRATORY TRACT INFECTION

REACTIONS (9)
  - ACUTE RESPIRATORY DISTRESS SYNDROME [None]
  - ALANINE AMINOTRANSFERASE INCREASED [None]
  - BLOOD ALKALINE PHOSPHATASE INCREASED [None]
  - BLOOD UREA INCREASED [None]
  - ERYTHEMA MULTIFORME [None]
  - LIVER FUNCTION TEST ABNORMAL [None]
  - PANCYTOPENIA [None]
  - PNEUMONIA [None]
  - TOXIC EPIDERMAL NECROLYSIS [None]
